FAERS Safety Report 21457668 (Version 1)
Quarter: 2022Q4

REPORT INFORMATION
  Report Type: Report from Study
  Country: DE (occurrence: DE)
  Receive Date: 20221014
  Receipt Date: 20221014
  Transmission Date: 20230112
  Serious: Yes (Hospitalization)
  Sender: FDA-Public Use
  Company Number: DE-ABBVIE-22K-062-4419718-00

PATIENT
  Age: 37 Year
  Sex: Male

DRUGS (5)
  1. SKYRIZI [Suspect]
     Active Substance: RISANKIZUMAB-RZAA
     Indication: Product used for unknown indication
     Route: 058
     Dates: start: 20190712, end: 20190807
  2. SKYRIZI [Suspect]
     Active Substance: RISANKIZUMAB-RZAA
     Route: 058
     Dates: start: 20190807
  3. Fucidine [Concomitant]
     Indication: Staphylococcal impetigo
     Route: 061
     Dates: start: 20190808, end: 20191011
  4. OCTENISAN [Concomitant]
     Indication: Staphylococcal impetigo
     Route: 061
     Dates: start: 20190808, end: 20191011
  5. IMUPRET [Concomitant]
     Indication: Nasopharyngitis
     Dosage: 6.00 DRAGEE
     Route: 048
     Dates: start: 20191031

REACTIONS (3)
  - Haemorrhoids [Recovered/Resolved]
  - Anorectal discomfort [Unknown]
  - Haematochezia [Unknown]

NARRATIVE: CASE EVENT DATE: 20220520
